FAERS Safety Report 23077970 (Version 1)
Quarter: 2023Q4

REPORT INFORMATION
  Report Type: Spontaneous
  Country: US (occurrence: US)
  Receive Date: 20231018
  Receipt Date: 20231018
  Transmission Date: 20240110
  Serious: Yes (Hospitalization)
  Sender: FDA-Public Use
  Company Number: US-drreddys-LIT/USA/23/0179980

PATIENT
  Age: 66 Year
  Sex: Female

DRUGS (4)
  1. HEPARIN SODIUM [Suspect]
     Active Substance: HEPARIN SODIUM
     Indication: Device related thrombosis
  2. RIVAROXABAN [Concomitant]
     Active Substance: RIVAROXABAN
     Indication: Anticoagulant therapy
  3. RIVAROXABAN [Concomitant]
     Active Substance: RIVAROXABAN
     Indication: Device related thrombosis
  4. ASPIRIN [Concomitant]
     Active Substance: ASPIRIN
     Indication: Device related thrombosis

REACTIONS (3)
  - Device related thrombosis [Unknown]
  - Condition aggravated [Unknown]
  - Drug ineffective [Unknown]
